FAERS Safety Report 12446257 (Version 1)
Quarter: 2016Q2

REPORT INFORMATION
  Report Type: Spontaneous
  Country: US (occurrence: None)
  Receive Date: 20160607
  Receipt Date: 20160607
  Transmission Date: 20160815
  Serious: Yes (Other)
  Sender: FDA-Public Use
  Company Number: None

PATIENT
  Age: 66 Year
  Sex: Female
  Weight: 95.26 kg

DRUGS (9)
  1. COQ10 [Concomitant]
     Active Substance: UBIDECARENONE
  2. MULTI VITAMIN [Concomitant]
     Active Substance: VITAMINS
  3. LEVOTHYROXINE 137 MCG, 137 MCG MYLAN [Suspect]
     Active Substance: LEVOTHYROXINE SODIUM
     Indication: THYROID DISORDER
     Dosage: 90 TABLET(S) IN THE MORNING TAKEN BY MOUTH
     Route: 048
     Dates: start: 20160311, end: 20160526
  4. SPIRONOLACTION [Concomitant]
  5. ALLOPURINOL. [Concomitant]
     Active Substance: ALLOPURINOL
  6. CARVEDILOL. [Concomitant]
     Active Substance: CARVEDILOL
  7. FUROSEMIDE. [Concomitant]
     Active Substance: FUROSEMIDE
  8. GLYBURIDE. [Concomitant]
     Active Substance: GLYBURIDE
  9. ATORVASTATIN [Suspect]
     Active Substance: ATORVASTATIN

REACTIONS (6)
  - Decreased activity [None]
  - Blood thyroid stimulating hormone decreased [None]
  - Somnolence [None]
  - Product substitution issue [None]
  - Disturbance in attention [None]
  - Dehydration [None]

NARRATIVE: CASE EVENT DATE: 20160523
